FAERS Safety Report 4424421-6 (Version None)
Quarter: 2004Q3

REPORT INFORMATION
  Report Type: 
  Country: None (occurrence: None)
  Receive Date: 20040719
  Receipt Date: 20040106
  Transmission Date: 20050211
  Serious: Yes (Hospitalization)
  Sender: FDA-Public Use
  Company Number: 189973

PATIENT
  Age: 61 Year
  Sex: Female
  Weight: 49.8957 kg

DRUGS (8)
  1. AVONEX [Suspect]
     Indication: MULTIPLE SCLEROSIS
     Dosage: 30 MCG QW IM
     Route: 030
     Dates: start: 20010201
  2. GABAPENTIN [Concomitant]
  3. BACLOFEN [Concomitant]
  4. DOCUSATE SODIUM [Concomitant]
  5. VITAMIN E [Concomitant]
  6. ASCORBIC ACID [Concomitant]
  7. FERROUS SULFATE TAB [Concomitant]
  8. CALCIUM CARBONATE [Concomitant]

REACTIONS (3)
  - DEPRESSION [None]
  - INSOMNIA [None]
  - MULTIPLE SCLEROSIS RELAPSE [None]
